FAERS Safety Report 8833238 (Version 1)
Quarter: 2012Q4

REPORT INFORMATION
  Report Type: 
  Country: MX (occurrence: MX)
  Receive Date: 20121010
  Receipt Date: 20121010
  Transmission Date: 20130627
  Serious: Yes (Death, Other)
  Sender: FDA-Public Use
  Company Number: PHHY2012MX089015

PATIENT
  Age: 75 None
  Sex: Female

DRUGS (4)
  1. CO-DIOVAN [Suspect]
     Indication: HYPERTENSION
     Dosage: 1 tablet daily
     Dates: start: 2000
  2. FUROSEMIDE [Concomitant]
     Indication: HYPERTENSION
     Dosage: 1 tablet daily
  3. METFORMIN [Concomitant]
     Indication: DIABETES MELLITUS
     Dosage: 500 mg a day
  4. PENTOXIFYLLINE [Concomitant]
     Dosage: 1 DF per day

REACTIONS (3)
  - Respiratory arrest [Fatal]
  - Respiratory rate decreased [Fatal]
  - Herpes zoster [Unknown]
